FAERS Safety Report 8520886-9 (Version None)
Quarter: 2012Q3

REPORT INFORMATION
  Report Type: 
  Country: None (occurrence: None)
  Receive Date: 20120712
  Receipt Date: 20120712
  Transmission Date: 20120928
  Serious: No
  Sender: FDA-Public Use
  Company Number: None

PATIENT
  Sex: Male

DRUGS (1)
  1. KAPVAY [Suspect]
     Indication: ATTENTION DEFICIT/HYPERACTIVITY DISORDER
     Dosage: 0.1MG QAM PO
     Route: 048
     Dates: start: 20120419, end: 20120427

REACTIONS (3)
  - INSOMNIA [None]
  - AGGRESSION [None]
  - IRRITABILITY [None]
